FAERS Safety Report 25475098 (Version 1)
Quarter: 2025Q2

REPORT INFORMATION
  Report Type: Spontaneous
  Country: US (occurrence: US)
  Receive Date: 20250624
  Receipt Date: 20250624
  Transmission Date: 20250716
  Serious: Yes (Death, Hospitalization, Other)
  Sender: AMGEN
  Company Number: US-AMGEN-USASP2025119800

PATIENT

DRUGS (2)
  1. PREDNISONE [Suspect]
     Active Substance: PREDNISONE
     Indication: Immunosuppressant drug therapy
     Route: 065
  2. MYCOPHENOLIC ACID [Concomitant]
     Active Substance: MYCOPHENOLIC ACID
     Indication: Immunosuppressant drug therapy

REACTIONS (7)
  - Death [Fatal]
  - Unevaluable event [Unknown]
  - Kidney transplant rejection [Unknown]
  - Renal transplant failure [Unknown]
  - Delayed graft function [Unknown]
  - Epstein-Barr virus associated lymphoproliferative disorder [Unknown]
  - Cytomegalovirus infection [Unknown]
